FAERS Safety Report 7913205-X (Version None)
Quarter: 2011Q4

REPORT INFORMATION
  Report Type: 
  Country: None (occurrence: None)
  Receive Date: 20111114
  Receipt Date: 20111104
  Transmission Date: 20120403
  Serious: Yes (Death, Hospitalization)
  Sender: FDA-Public Use
  Company Number: US-ASTRAZENECA-2011SE68253

PATIENT
  Age: 65 Year
  Sex: Female

DRUGS (5)
  1. CARVEDILOL [Concomitant]
  2. CLORANA [Concomitant]
  3. INSULIN [Suspect]
     Route: 065
  4. CAPTOPRIL [Concomitant]
  5. ONGLYZA [Suspect]
     Indication: DIABETES MELLITUS
     Route: 048
     Dates: start: 20110101

REACTIONS (3)
  - CARDIAC DISORDER [None]
  - DIABETES MELLITUS [None]
  - RENAL IMPAIRMENT [None]
